FAERS Safety Report 5856361-X (Version None)
Quarter: 2008Q3

REPORT INFORMATION
  Report Type: 
  Country: None (occurrence: None)
  Receive Date: 20080821
  Receipt Date: 20080821
  Transmission Date: 20090109
  Serious: Yes (Other)
  Sender: FDA-Public Use
  Company Number: None

PATIENT
  Age: 65 Year
  Sex: Female
  Weight: 68.9467 kg

DRUGS (1)
  1. ZETIA [Suspect]
     Indication: BLOOD CHOLESTEROL INCREASED
     Dates: start: 20080108, end: 20080820

REACTIONS (4)
  - ABASIA [None]
  - GAIT DISTURBANCE [None]
  - MUSCLE DISORDER [None]
  - PAIN IN EXTREMITY [None]
